FAERS Safety Report 4667223-8 (Version None)
Quarter: 2005Q2

REPORT INFORMATION
  Report Type: 
  Country: None (occurrence: None)
  Receive Date: 20050520
  Receipt Date: 20041230
  Transmission Date: 20051028
  Serious: No
  Sender: FDA-Public Use
  Company Number: US-BRISTOL-MYERS SQUIBB COMPANY-12809976

PATIENT
  Age: 78 Year
  Sex: Female
  Weight: 68 kg

DRUGS (1)
  1. SINEMET [Suspect]
     Indication: MOVEMENT DISORDER
     Route: 048
     Dates: start: 20040801

REACTIONS (2)
  - NERVOUSNESS [None]
  - STOMACH DISCOMFORT [None]
